FAERS Safety Report 14713541 (Version 1)
Quarter: 2018Q2

REPORT INFORMATION
  Report Type: Spontaneous
  Country: US (occurrence: US)
  Receive Date: 20180404
  Receipt Date: 20180404
  Transmission Date: 20180711
  Serious: No
  Sender: FDA-Public Use
  Company Number: US-PFIZER INC-2018135456

PATIENT
  Age: 71 Year
  Sex: Female
  Weight: 68.4 kg

DRUGS (2)
  1. AROMASIN [Suspect]
     Active Substance: EXEMESTANE
     Indication: BREAST CANCER FEMALE
     Dosage: 25 MG TABLET, ONCE A DAY
     Route: 048
     Dates: start: 201802, end: 201803
  2. AROMASIN [Suspect]
     Active Substance: EXEMESTANE
     Dosage: 25 MG TABLET, ONCE A DAY
     Route: 048
     Dates: start: 20180330

REACTIONS (1)
  - Hot flush [Recovering/Resolving]

NARRATIVE: CASE EVENT DATE: 201802
